FAERS Safety Report 8768880 (Version 1)
Quarter: 2012Q4

REPORT INFORMATION
  Report Type: 
  Country: US (occurrence: US)
  Receive Date: 20120904
  Receipt Date: 20120904
  Transmission Date: 20130627
  Serious: No
  Sender: FDA-Public Use
  Company Number: US-AMGEN-USASP2012051794

PATIENT
  Age: 57 Year
  Sex: Female

DRUGS (1)
  1. ENBREL [Suspect]
     Indication: RHEUMATOID ARTHRITIS
     Dosage: 50 mg, qwk
     Dates: start: 19990528

REACTIONS (4)
  - Pain in extremity [Not Recovered/Not Resolved]
  - Laceration [Not Recovered/Not Resolved]
  - Arthralgia [Recovered/Resolved]
  - Lyme disease [Recovered/Resolved]
